FAERS Safety Report 6842300-1 (Version None)
Quarter: 2010Q3

REPORT INFORMATION
  Report Type: 
  Country: None (occurrence: None)
  Receive Date: 20100714
  Receipt Date: 20070724
  Transmission Date: 20110219
  Serious: No
  Sender: FDA-Public Use
  Company Number: US-PFIZER INC-2007062967

PATIENT
  Age: 41 Year
  Sex: Female
  Weight: 60 kg

DRUGS (1)
  1. CHANTIX [Suspect]
     Indication: SMOKING CESSATION THERAPY
     Dates: start: 20070710, end: 20070722

REACTIONS (6)
  - ARTHRALGIA [None]
  - FLAT AFFECT [None]
  - IRRITABILITY [None]
  - PAIN IN EXTREMITY [None]
  - TEARFULNESS [None]
  - TENSION [None]
